FAERS Safety Report 24061166 (Version 15)
Quarter: 2025Q4

REPORT INFORMATION
  Report Type: Report from Study
  Country: US (occurrence: US)
  Receive Date: 20240708
  Receipt Date: 20251218
  Transmission Date: 20260117
  Serious: Yes (Hospitalization, Other)
  Sender: PFIZER
  Company Number: US-PFIZER INC-PV202400087640

PATIENT
  Age: 66 Year
  Sex: Female

DRUGS (1)
  1. XELJANZ XR [Suspect]
     Active Substance: TOFACITINIB CITRATE
     Indication: Rheumatoid arthritis
     Dosage: 11 MG

REACTIONS (18)
  - Pneumonia [Unknown]
  - Condition aggravated [Not Recovered/Not Resolved]
  - Rheumatoid arthritis [Not Recovered/Not Resolved]
  - Pain [Not Recovered/Not Resolved]
  - Condition aggravated [Unknown]
  - Dysphagia [Unknown]
  - Knee arthroplasty [Unknown]
  - Hip arthroplasty [Unknown]
  - Cerebrovascular accident [Unknown]
  - Oropharyngeal discomfort [Not Recovered/Not Resolved]
  - Impaired driving ability [Unknown]
  - Dysgraphia [Unknown]
  - Malaise [Unknown]
  - Migraine [Unknown]
  - Illness [Unknown]
  - Sneezing [Unknown]
  - Bronchitis [Unknown]
  - Dysarthria [Unknown]
